FAERS Safety Report 22400981 (Version 5)
Quarter: 2025Q2

REPORT INFORMATION
  Report Type: Report from Study
  Country: DE (occurrence: DE)
  Receive Date: 20230602
  Receipt Date: 20250528
  Transmission Date: 20250717
  Serious: Yes (Death, Life-Threatening, Disabling)
  Sender: BIOMARIN
  Company Number: DE-BIOMARINAP-DE-2023-150693

PATIENT

DRUGS (4)
  1. PALYNZIQ [Suspect]
     Active Substance: PEGVALIASE-PQPZ
     Indication: Phenylketonuria
     Route: 058
  2. OMEPRAZOLE [Concomitant]
     Active Substance: OMEPRAZOLE
     Indication: Gastrointestinal disorder
  3. SALBUHEXAL [Concomitant]
     Active Substance: ALBUTEROL
     Indication: Asthma
  4. VITAMIN D [Concomitant]
     Active Substance: VITAMIN D NOS
     Indication: Osteoporosis

REACTIONS (1)
  - Colon cancer [Fatal]

NARRATIVE: CASE EVENT DATE: 20230501
